FAERS Safety Report 12626109 (Version 1)
Quarter: 2016Q3

REPORT INFORMATION
  Report Type: Spontaneous
  Country: CH (occurrence: CH)
  Receive Date: 20160805
  Receipt Date: 20160805
  Transmission Date: 20161109
  Serious: Yes (Hospitalization)
  Sender: FDA-Public Use
  Company Number: CH-BAYER-2016-145377

PATIENT
  Age: 6 Month
  Sex: Female
  Weight: 2.7 kg

DRUGS (14)
  1. INDAPAMIDE. [Suspect]
     Active Substance: INDAPAMIDE
     Indication: ESSENTIAL HYPERTENSION
     Dosage: 1.25 MG, UNK
     Route: 064
     Dates: start: 20150624, end: 20150831
  2. CELESTONE CHRONODOSE [Suspect]
     Active Substance: BETAMETHASONE ACETATE\BETAMETHASONE SODIUM PHOSPHATE
     Indication: IMMATURE RESPIRATORY SYSTEM
     Dosage: UNK
     Route: 064
     Dates: start: 20160111, end: 20160112
  3. AMLODIPINE [Suspect]
     Active Substance: AMLODIPINE BESYLATE
     Indication: ESSENTIAL HYPERTENSION
     Dosage: 5 MG, QD
     Route: 064
     Dates: start: 20150901, end: 20160222
  4. AMLODIPINE [Suspect]
     Active Substance: AMLODIPINE BESYLATE
     Indication: ESSENTIAL HYPERTENSION
     Dosage: 10 MG, QD
     Route: 064
     Dates: start: 20160223, end: 20160225
  5. AMLODIPINE [Suspect]
     Active Substance: AMLODIPINE BESYLATE
     Indication: ESSENTIAL HYPERTENSION
     Dosage: 10 MG, QD
     Route: 064
     Dates: start: 20160223, end: 20160225
  6. CELESTONE CHRONODOSE [Suspect]
     Active Substance: BETAMETHASONE ACETATE\BETAMETHASONE SODIUM PHOSPHATE
     Indication: IMMATURE RESPIRATORY SYSTEM
     Dosage: UNK
     Route: 064
     Dates: start: 20160111, end: 20160112
  7. ASPIRIN CARDIO [Suspect]
     Active Substance: ASPIRIN
     Dosage: UNK
     Route: 064
     Dates: start: 20150920, end: 201601
  8. INDAPAMIDE. [Suspect]
     Active Substance: INDAPAMIDE
     Indication: ESSENTIAL HYPERTENSION
     Dosage: 1.25 MG, UNK
     Route: 064
     Dates: start: 20150624, end: 20150831
  9. ISOPHANE INSULIN [Suspect]
     Active Substance: INSULIN NOS
     Indication: GESTATIONAL DIABETES
     Dosage: UNK
     Route: 064
     Dates: start: 201512, end: 20160225
  10. ASPIRIN CARDIO [Suspect]
     Active Substance: ASPIRIN
     Dosage: UNK
     Route: 064
     Dates: start: 20150920, end: 201601
  11. AMLODIPINE [Suspect]
     Active Substance: AMLODIPINE BESYLATE
     Indication: ESSENTIAL HYPERTENSION
     Dosage: 5 MG, QD
     Route: 064
     Dates: start: 20150901, end: 20160222
  12. ISOPHANE INSULIN [Suspect]
     Active Substance: INSULIN NOS
     Indication: GESTATIONAL DIABETES
     Dosage: UNK
     Route: 064
     Dates: start: 201512, end: 20160225
  13. PERINDOPRIL [Suspect]
     Active Substance: PERINDOPRIL
     Indication: ESSENTIAL HYPERTENSION
     Dosage: 5 MG, QD
     Route: 064
     Dates: start: 20150624, end: 20150831
  14. PERINDOPRIL [Suspect]
     Active Substance: PERINDOPRIL
     Indication: ESSENTIAL HYPERTENSION
     Dosage: 5 MG, QD
     Route: 064
     Dates: start: 20150624, end: 20150831

REACTIONS (9)
  - Retroplacental haematoma [Recovered/Resolved]
  - Metrorrhagia [Recovered/Resolved]
  - Gestational diabetes [Recovered/Resolved]
  - Hypoglycaemia neonatal [Recovered/Resolved]
  - Caesarean section [None]
  - Supraventricular tachycardia [Recovered/Resolved]
  - Premature baby [Recovered/Resolved]
  - Premature separation of placenta [Recovered/Resolved]
  - Foetal exposure during pregnancy [Recovered/Resolved]
